FAERS Safety Report 8223745-4 (Version None)
Quarter: 2012Q1

REPORT INFORMATION
  Report Type: 
  Country: None (occurrence: None)
  Receive Date: 20120321
  Receipt Date: 20120319
  Transmission Date: 20120608
  Serious: Yes (Hospitalization)
  Sender: FDA-Public Use
  Company Number: DE-AMGEN-DEUSP2012013384

PATIENT
  Age: 83 Year
  Sex: Female

DRUGS (5)
  1. TRIAMTERENE AND HYDROCHLOROTHIAZIDE [Concomitant]
     Indication: HYPERTENSION
  2. PROLIA [Suspect]
     Indication: OSTEOPOROSIS
     Dosage: 60 MG, ONE TIME DOSE
     Route: 058
     Dates: start: 20120105, end: 20120105
  3. ASPIRIN [Concomitant]
     Indication: PROPHYLAXIS
     Dosage: 100 MG, UNK
  4. NALOXONE [Concomitant]
     Indication: PAIN
  5. EXFORGE [Concomitant]
     Indication: HYPERTENSION
     Dosage: UNK UNK, QD

REACTIONS (3)
  - MUSCULAR WEAKNESS [None]
  - MONOPARESIS [None]
  - PAIN IN EXTREMITY [None]
